FAERS Safety Report 16730398 (Version 1)
Quarter: 2019Q4

REPORT INFORMATION
  Report Type: Spontaneous
  Country: US (occurrence: US)
  Receive Date: 20190821
  Receipt Date: 20190821
  Transmission Date: 20200122
  Serious: No
  Sender: FDA-Public Use
  Company Number: None

PATIENT
  Age: 40 Year
  Sex: Female
  Weight: 85.5 kg

DRUGS (8)
  1. CEPHALEXIN 500 MG CAPSULE [Suspect]
     Active Substance: CEPHALEXIN
     Indication: TOOTH INFECTION
     Dosage: ?          QUANTITY:1 CAPSULE(S);?
     Route: 048
     Dates: start: 20190817
  2. CEPHALEXIN 500 MG CAPSULE [Suspect]
     Active Substance: CEPHALEXIN
     Indication: GINGIVITIS
     Dosage: ?          QUANTITY:1 CAPSULE(S);?
     Route: 048
     Dates: start: 20190817
  3. VITAMIN C [Concomitant]
     Active Substance: ASCORBIC ACID
  4. COQ10 [Concomitant]
     Active Substance: UBIDECARENONE
  5. CALCIUM MAGNESIUM ZINC [Concomitant]
     Active Substance: CALCIUM\MAGNESIUM\ZINC
  6. VITAMIN D3 [Concomitant]
     Active Substance: CHOLECALCIFEROL
  7. DHEA [Concomitant]
     Active Substance: PRASTERONE
  8. PRENATAL VITAMIN [Concomitant]
     Active Substance: VITAMINS

REACTIONS (1)
  - Insomnia [None]

NARRATIVE: CASE EVENT DATE: 20190820
